FAERS Safety Report 5930765-9 (Version None)
Quarter: 2008Q4

REPORT INFORMATION
  Report Type: 
  Country: None (occurrence: None)
  Receive Date: 20081022
  Receipt Date: 20081006
  Transmission Date: 20090506
  Serious: Yes (Hospitalization)
  Sender: FDA-Public Use
  Company Number: DSA_32373_2008

PATIENT
  Sex: Male

DRUGS (2)
  1. DILTIAZEM HYDROCHLORIDE [Suspect]
     Indication: DRUG USE FOR UNKNOWN INDICATION
     Dosage: (DF ORAL)
     Route: 048
     Dates: end: 20080709
  2. HYDROCHLOROTHIAZIDE [Suspect]
     Indication: DRUG USE FOR UNKNOWN INDICATION
     Dosage: (DF ORAL)
     Route: 048
     Dates: start: 20080630, end: 20080709

REACTIONS (11)
  - BLOOD CREATINE PHOSPHOKINASE INCREASED [None]
  - BRONCHIAL DISORDER [None]
  - CELL DEATH [None]
  - CHOLESTASIS [None]
  - CONFUSIONAL STATE [None]
  - ERYTHEMA MULTIFORME [None]
  - LIVER DISORDER [None]
  - LYMPHADENOPATHY [None]
  - PRODUCTIVE COUGH [None]
  - TOXIC SKIN ERUPTION [None]
  - WHITE BLOOD CELL COUNT DECREASED [None]
